FAERS Safety Report 8439764-9 (Version None)
Quarter: 2012Q2

REPORT INFORMATION
  Report Type: 
  Country: None (occurrence: None)
  Receive Date: 20120611
  Receipt Date: 20120611
  Transmission Date: 20120825
  Serious: Yes (Other)
  Sender: FDA-Public Use
  Company Number: None

PATIENT
  Sex: Male
  Weight: 82.5547 kg

DRUGS (2)
  1. DULERA [Suspect]
     Indication: ASTHMA
     Dosage: 2 PUFFS TWICE DAILY INHAL
     Route: 055
     Dates: start: 20120607, end: 20120608
  2. SYMBICORT [Suspect]
     Indication: ASTHMA
     Dosage: 2 PUFFS TWICE DAILY INHAL
     Route: 055
     Dates: start: 20120601, end: 20120603

REACTIONS (4)
  - CHEST DISCOMFORT [None]
  - OEDEMA PERIPHERAL [None]
  - SWOLLEN TONGUE [None]
  - PAIN IN EXTREMITY [None]
